FAERS Safety Report 5044462-8 (Version None)
Quarter: 2006Q3

REPORT INFORMATION
  Report Type: 
  Country: None (occurrence: None)
  Receive Date: 20060706
  Receipt Date: 20060629
  Transmission Date: 20061208
  Serious: Yes (Hospitalization)
  Sender: FDA-Public Use
  Company Number: 2006/00296

PATIENT
  Sex: Male
  Weight: 2.5 kg

DRUGS (2)
  1. LAMICTAL [Suspect]
  2. VALPROATE SODIUM [Concomitant]

REACTIONS (6)
  - DRUG EXPOSURE DURING PREGNANCY [None]
  - HYPERTONIA [None]
  - HYPOTHERMIA [None]
  - RASH PUSTULAR [None]
  - RESPIRATORY DISTRESS [None]
  - TREMOR [None]
